FAERS Safety Report 17953360 (Version 3)
Quarter: 2020Q3

REPORT INFORMATION
  Report Type: Report from Study
  Country: CA (occurrence: CA)
  Receive Date: 20200628
  Receipt Date: 20200703
  Transmission Date: 20201103
  Serious: Yes (Other)
  Sender: FDA-Public Use
  Company Number: CA-UCBSA-2020018403

PATIENT
  Sex: Female

DRUGS (2)
  1. CERTOLIZUMAB PEGOL AUTOCLICKS [Suspect]
     Active Substance: CERTOLIZUMAB PEGOL
     Indication: RHEUMATOID ARTHRITIS
     Dosage: 400 MILLIGRAM, EV 2 WEEKS(QOW)
     Route: 058
     Dates: start: 20200413, end: 2020
  2. CERTOLIZUMAB PEGOL AUTOCLICKS [Suspect]
     Active Substance: CERTOLIZUMAB PEGOL
     Dosage: 200 MILLIGRAM, EV 2 WEEKS(QOW)
     Route: 058
     Dates: start: 20200525

REACTIONS (6)
  - Cervicobrachial syndrome [Unknown]
  - Asthenia [Not Recovered/Not Resolved]
  - Injection site pruritus [Recovered/Resolved]
  - Skin discolouration [Recovered/Resolved]
  - Acne [Unknown]
  - Injection site discolouration [Recovered/Resolved]

NARRATIVE: CASE EVENT DATE: 2020
